FAERS Safety Report 7369216-9 (Version None)
Quarter: 2011Q1

REPORT INFORMATION
  Report Type: 
  Country: None (occurrence: None)
  Receive Date: 20110323
  Receipt Date: 20110316
  Transmission Date: 20110831
  Serious: Yes (Other)
  Sender: FDA-Public Use
  Company Number: CN-ROCHE-766001

PATIENT
  Age: 79 Year
  Sex: Male
  Weight: 60 kg

DRUGS (2)
  1. XELODA [Suspect]
     Dosage: 6 COURSES WERE TOTALLY USED.
     Route: 048
     Dates: start: 20050101
  2. XELODA [Suspect]
     Route: 048
     Dates: start: 20100301

REACTIONS (2)
  - ANAL CANCER [None]
  - DRUG INEFFECTIVE [None]
